FAERS Safety Report 8402223-3 (Version None)
Quarter: 2012Q2

REPORT INFORMATION
  Report Type: 
  Country: None (occurrence: None)
  Receive Date: 20120525
  Receipt Date: 20120515
  Transmission Date: 20120825
  Serious: Yes (Hospitalization, Other)
  Sender: FDA-Public Use
  Company Number: 2012SP025755

PATIENT
  Age: 36 Year
  Sex: Female

DRUGS (10)
  1. STILNOX (ZOLPIDEM) (20.5 MG) [Suspect]
     Indication: DEPRESSION
     Dosage: 12.5 MG, QD, PO
     Route: 048
     Dates: start: 20111201
  2. PURINETHOL [Concomitant]
  3. POTASSIUM CHLORIDE [Concomitant]
  4. REMERON [Suspect]
     Indication: DEPRESSION
     Dosage: 30 MG, QD, PO
     Route: 048
     Dates: start: 20111101
  5. VALTREX [Concomitant]
  6. BACTRIM [Concomitant]
  7. MOTILIUM [Concomitant]
  8. FLUOXETINE [Suspect]
     Indication: DEPRESSION
     Dosage: 20 MG, QD, PO
     Route: 048
     Dates: start: 20111101
  9. PANTOPRAZOLE [Concomitant]
  10. ZINC SULFATE [Concomitant]

REACTIONS (10)
  - OVERDOSE [None]
  - LEUKOPENIA [None]
  - DISSOCIATIVE FUGUE [None]
  - AGRANULOCYTOSIS [None]
  - INFECTION [None]
  - PORIOMANIA [None]
  - LEUKAEMIA [None]
  - SUICIDE ATTEMPT [None]
  - CONFUSIONAL STATE [None]
  - HYPOTHERMIA [None]
